FAERS Safety Report 5294972-3 (Version None)
Quarter: 2007Q2

REPORT INFORMATION
  Report Type: 
  Country: None (occurrence: None)
  Receive Date: 20070412
  Receipt Date: 20070404
  Transmission Date: 20071010
  Serious: Yes (Hospitalization)
  Sender: FDA-Public Use
  Company Number: CA-ROCHE-490112

PATIENT
  Age: 51 Year
  Sex: Female
  Weight: 56 kg

DRUGS (3)
  1. PEGASYS [Suspect]
     Indication: HEPATITIS C
     Route: 058
     Dates: start: 20061030, end: 20070319
  2. COPEGUS [Suspect]
     Indication: HEPATITIS C
     Route: 048
     Dates: start: 20061030, end: 20070321
  3. ROBAXISAL [Concomitant]
     Indication: MIGRAINE
     Dosage: MEDICATION REPORTED AS METHOXISAL / ROBAXISAL. DOSAGE REGIMEN REPORTED AS PRN.
     Route: 048

REACTIONS (2)
  - HAEMOGLOBIN DECREASED [None]
  - INTESTINAL ISCHAEMIA [None]
